FAERS Safety Report 6549098-5 (Version None)
Quarter: 2010Q1

REPORT INFORMATION
  Report Type: 
  Country: None (occurrence: None)
  Receive Date: 20100125
  Receipt Date: 20100121
  Transmission Date: 20100710
  Serious: Yes (Death, Life-Threatening, Hospitalization)
  Sender: FDA-Public Use
  Company Number: FR-ROCHE-680721

PATIENT
  Sex: Male

DRUGS (11)
  1. ROCEPHIN [Suspect]
     Indication: DRUG USE FOR UNKNOWN INDICATION
     Route: 040
     Dates: start: 20081115, end: 20081124
  2. KEPPRA [Suspect]
     Indication: EPILEPSY
     Route: 048
     Dates: start: 20071101, end: 20081113
  3. KEPPRA [Suspect]
     Route: 048
     Dates: start: 20081128, end: 20081207
  4. TAZOCILLINE [Suspect]
     Indication: DRUG USE FOR UNKNOWN INDICATION
     Dosage: FORM: INFUSION
     Route: 042
     Dates: start: 20081113, end: 20081114
  5. CIPROFLOXACIN HCL [Suspect]
     Indication: DRUG USE FOR UNKNOWN INDICATION
     Dosage: FORM: INFUSION
     Route: 042
     Dates: start: 20081113, end: 20081124
  6. CIPROFLOXACIN HCL [Suspect]
     Route: 042
     Dates: start: 20081202, end: 20081206
  7. TRILEPTAL [Suspect]
     Indication: DRUG USE FOR UNKNOWN INDICATION
     Route: 048
     Dates: start: 20081211, end: 20081217
  8. SIMVASTATIN [Concomitant]
  9. RIVOTRIL [Concomitant]
  10. GARDENAL [Concomitant]
  11. FLAGYL [Concomitant]

REACTIONS (2)
  - EOSINOPHIL COUNT INCREASED [None]
  - TOXIC EPIDERMAL NECROLYSIS [None]
